FAERS Safety Report 9324944 (Version 1)
Quarter: 2013Q2

REPORT INFORMATION
  Report Type: Spontaneous
  Country: US (occurrence: US)
  Receive Date: 20130603
  Receipt Date: 20130603
  Transmission Date: 20140414
  Serious: Yes (Other)
  Sender: FDA-Public Use
  Company Number: US-ACTAVIS-2013-09427

PATIENT
  Sex: Female

DRUGS (5)
  1. BUPRENORPHINE-NALOXONE (AELLC) [Suspect]
     Indication: PAIN
     Dosage: 2 TABLET OF 8MG/2 MG, DAILY
     Route: 048
     Dates: start: 20130510
  2. ZOLOFT [Concomitant]
     Indication: DEPRESSION
     Dosage: 100 MG, DAILY
     Route: 048
  3. METOPROLOL [Concomitant]
     Indication: ARRHYTHMIA
     Dosage: UNK
     Route: 048
  4. LASIX                              /00032601/ [Concomitant]
     Indication: DIURETIC THERAPY
     Dosage: UNK
     Route: 048
  5. RESTORIL                           /00054301/ [Concomitant]
     Indication: SLEEP DISORDER
     Dosage: 2 MG, QHS
     Route: 065

REACTIONS (5)
  - Drug withdrawal syndrome [Not Recovered/Not Resolved]
  - Drug ineffective [Not Recovered/Not Resolved]
  - Pain [Not Recovered/Not Resolved]
  - Diarrhoea [Recovering/Resolving]
  - Nausea [Recovering/Resolving]
